FAERS Safety Report 18983126 (Version 1)
Quarter: 2021Q1

REPORT INFORMATION
  Report Type: Spontaneous
  Country: US (occurrence: US)
  Receive Date: 20210308
  Receipt Date: 20210308
  Transmission Date: 20210420
  Serious: No
  Sender: FDA-Public Use
  Company Number: US-INCYTE CORPORATION-2021IN001828

PATIENT

DRUGS (2)
  1. JAKAFI [Suspect]
     Active Substance: RUXOLITINIB
     Dosage: 5 MILLIGRAM, QHS (1 TABLET BY MOUTH EVERYDAY AT BEDTIME)
     Route: 048
     Dates: start: 20190129
  2. JAKAFI [Suspect]
     Active Substance: RUXOLITINIB
     Dosage: 10 MILLIGRAM, QD (1 TABLET BY MOUTH EVERY MORNING)
     Route: 048
     Dates: start: 20190129

REACTIONS (2)
  - Mood altered [Unknown]
  - Product dose omission issue [Unknown]
